FAERS Safety Report 4673515-9 (Version None)
Quarter: 2005Q2

REPORT INFORMATION
  Report Type: 
  Country: None (occurrence: None)
  Receive Date: 20050523
  Receipt Date: 20050511
  Transmission Date: 20051028
  Serious: Yes (Hospitalization, Other)
  Sender: FDA-Public Use
  Company Number: 2005073257

PATIENT
  Sex: Male
  Weight: 77.1115 kg

DRUGS (3)
  1. DILANTIN [Suspect]
     Indication: CONVULSION
     Dosage: 600 MG (600 MG, 1 IN 1 D), ORAL
     Route: 048
     Dates: start: 19890101
  2. LIPITOR [Concomitant]
  3. ASPIRIN [Concomitant]

REACTIONS (5)
  - ANTICONVULSANT DRUG LEVEL INCREASED [None]
  - BACTERIAL INFECTION [None]
  - CENTRAL NERVOUS SYSTEM INFECTION [None]
  - GRAND MAL CONVULSION [None]
  - POSTOPERATIVE INFECTION [None]
